FAERS Safety Report 7950471-9 (Version None)
Quarter: 2011Q4

REPORT INFORMATION
  Report Type: 
  Country: None (occurrence: None)
  Receive Date: 20111130
  Receipt Date: 20111121
  Transmission Date: 20120403
  Serious: Yes (Other)
  Sender: FDA-Public Use
  Company Number: AU-ASTRAZENECA-2011SE70609

PATIENT
  Age: 87 Year
  Sex: Female

DRUGS (11)
  1. PERINDOPRIL ERBUMINE [Suspect]
     Indication: ESSENTIAL HYPERTENSION
     Route: 048
     Dates: start: 20110330
  2. AMOXICILLIN [Concomitant]
  3. ATENOLOL [Suspect]
     Indication: ESSENTIAL HYPERTENSION
     Route: 048
     Dates: start: 20110316
  4. AMIODARONE HCL [Suspect]
     Indication: ARRHYTHMIA
     Route: 048
     Dates: start: 20110330
  5. LEVOTHYROXINE SODIUM [Suspect]
     Indication: MYXOEDEMA
     Route: 048
  6. ACETYLSALICYLIC ACID SRT [Concomitant]
  7. SIMVASTATIN [Concomitant]
  8. LERCANIDIPINE [Suspect]
     Indication: ESSENTIAL HYPERTENSION
     Route: 048
  9. CHLORTHALIDONE [Suspect]
     Indication: ESSENTIAL HYPERTENSION
     Route: 048
     Dates: start: 20110330
  10. ATACAND [Suspect]
     Indication: ESSENTIAL HYPERTENSION
     Route: 048
     Dates: start: 20110330
  11. METHYLDOPA [Suspect]
     Indication: ESSENTIAL HYPERTENSION
     Route: 048
     Dates: start: 20110316

REACTIONS (4)
  - DIZZINESS [None]
  - SYNCOPE [None]
  - ORTHOSTATIC HYPOTENSION [None]
  - NAUSEA [None]
